FAERS Safety Report 10224026 (Version 1)
Quarter: 2014Q2

REPORT INFORMATION
  Report Type: Spontaneous
  Country: TR (occurrence: TR)
  Receive Date: 20140609
  Receipt Date: 20140609
  Transmission Date: 20141212
  Serious: Yes (Hospitalization)
  Sender: FDA-Public Use
  Company Number: TR-NOVOPROD-411961

PATIENT
  Age: 33 Year
  Sex: Female
  Weight: 120 kg

DRUGS (2)
  1. NOVORAPID FLEXPEN [Suspect]
     Indication: GESTATIONAL DIABETES
     Dosage: 32 U, QD
     Route: 058
     Dates: start: 20140326
  2. HUMULIN N [Suspect]
     Indication: GESTATIONAL DIABETES
     Dosage: 16 U, QD
     Route: 058
     Dates: start: 20140326

REACTIONS (3)
  - Foetal death [Unknown]
  - Hyperglycaemia [Recovered/Resolved]
  - Exposure during pregnancy [Recovered/Resolved]
